FAERS Safety Report 9830536 (Version 1)
Quarter: 2014Q1

REPORT INFORMATION
  Report Type: Spontaneous
  Country: GB (occurrence: GB)
  Receive Date: 20140120
  Receipt Date: 20140120
  Transmission Date: 20141002
  Serious: Yes (Life-Threatening)
  Sender: FDA-Public Use
  Company Number: GB-NOVOPROD-397544

PATIENT
  Age: 51 Year
  Sex: Female

DRUGS (7)
  1. VICTOZA [Suspect]
     Indication: PRODUCT USED FOR UNKNOWN INDICATION
     Dosage: 1.2 MG
     Route: 058
     Dates: start: 200803, end: 201306
  2. SITAGLIPTIN [Suspect]
     Indication: PRODUCT USED FOR UNKNOWN INDICATION
     Dosage: 100 MG
     Route: 048
     Dates: start: 2007, end: 201303
  3. BUSCOPAN [Concomitant]
     Dosage: UNK
     Route: 048
  4. CHLORPROMAZINE [Concomitant]
     Dosage: 75 MG
     Route: 065
  5. HUMULIN I [Concomitant]
     Dosage: UNK
     Route: 058
  6. OMEPRAZOLE [Concomitant]
     Dosage: 20 MG
     Route: 048
  7. PREGABALIN [Concomitant]
     Dosage: 75 MG
     Route: 048

REACTIONS (2)
  - Cholangiocarcinoma [Not Recovered/Not Resolved]
  - Metastases to liver [Not Recovered/Not Resolved]
